FAERS Safety Report 9090921 (Version 2)
Quarter: 2014Q3

REPORT INFORMATION
  Report Type: Report from Study
  Country: IT (occurrence: IT)
  Receive Date: 20130131
  Receipt Date: 20140815
  Transmission Date: 20150326
  Serious: Yes (Other)
  Sender: FDA-Public Use
  Company Number: IT-ROCHE-1184460

PATIENT

DRUGS (2)
  1. CAPECITABINE [Suspect]
     Active Substance: CAPECITABINE
     Indication: COLORECTAL CANCER
     Dosage: 150 AND 500 MG AND WAS GIVEN ORALLY AT A DOSE OF 1,750 MG/M2/DIE, ACCORDING TO THE FOLLOWING TIMETAB
     Route: 048
  2. OXALIPLATIN. [Suspect]
     Active Substance: OXALIPLATIN
     Indication: COLORECTAL CANCER
     Dosage: DILUTED IN 100 ML OF DEXTROSE 5%, GIVEN AS A 12-H C.I. (FROM 8:00 A.M. TO 8:00 P.M.) ON DAYS 1 AND 8
     Route: 065

REACTIONS (9)
  - Palmar-plantar erythrodysaesthesia syndrome [Unknown]
  - Thrombocytopenia [Unknown]
  - Diarrhoea [Unknown]
  - Neutropenia [Unknown]
  - Skin toxicity [Unknown]
  - Fatigue [Unknown]
  - Hepatotoxicity [Unknown]
  - Neurotoxicity [Unknown]
  - Hyperbilirubinaemia [Unknown]
